FAERS Safety Report 16469521 (Version 1)
Quarter: 2019Q3

REPORT INFORMATION
  Report Type: Spontaneous
  Country: US (occurrence: US)
  Receive Date: 20190622
  Receipt Date: 20190622
  Transmission Date: 20191004
  Serious: Yes (Other)
  Sender: FDA-Public Use
  Company Number: None

PATIENT
  Age: 64 Year
  Sex: Female
  Weight: 61.65 kg

DRUGS (6)
  1. ZOLPIDEM [Suspect]
     Active Substance: ZOLPIDEM TARTRATE
     Indication: INSOMNIA
     Dosage: ?          QUANTITY:1 TABLET(S);?
     Route: 048
  2. MAGNESIUM [Concomitant]
     Active Substance: MAGNESIUM
  3. DULOXETINE. [Concomitant]
     Active Substance: DULOXETINE
  4. DILTIAZEM. [Concomitant]
     Active Substance: DILTIAZEM
  5. VITAMIN C [Concomitant]
     Active Substance: ASCORBIC ACID
  6. LEVOTHYROXINE. [Concomitant]
     Active Substance: LEVOTHYROXINE

REACTIONS (6)
  - Product substitution issue [None]
  - Nightmare [None]
  - Drug ineffective [None]
  - Discomfort [None]
  - Poor quality sleep [None]
  - Palpitations [None]

NARRATIVE: CASE EVENT DATE: 20190621
